FAERS Safety Report 7636405-5 (Version None)
Quarter: 2011Q3

REPORT INFORMATION
  Report Type: 
  Country: None (occurrence: None)
  Receive Date: 20110726
  Receipt Date: 20110720
  Transmission Date: 20111222
  Serious: Yes (Hospitalization, Other)
  Sender: FDA-Public Use
  Company Number: CA-ABBOTT-11P-028-0838799-00

PATIENT
  Sex: Female
  Weight: 77.18 kg

DRUGS (2)
  1. UNKNOWN MEDICATION [Concomitant]
     Indication: PRODUCT USED FOR UNKNOWN INDICATION
  2. HUMIRA [Suspect]
     Indication: CROHN'S DISEASE
     Route: 058
     Dates: start: 20101004

REACTIONS (8)
  - WOUND SECRETION [None]
  - DIARRHOEA [None]
  - INTESTINAL OBSTRUCTION [None]
  - WOUND DEHISCENCE [None]
  - INCISION SITE PAIN [None]
  - HYPOPHAGIA [None]
  - PROCEDURAL PAIN [None]
  - ABDOMINAL PAIN UPPER [None]
